FAERS Safety Report 19380897 (Version 1)
Quarter: 2021Q2

REPORT INFORMATION
  Report Type: Spontaneous
  Country: US (occurrence: US)
  Receive Date: 20210604
  Receipt Date: 20210604
  Transmission Date: 20210717
  Serious: Yes (Other)
  Sender: FDA-Public Use
  Company Number: None

PATIENT
  Sex: Female

DRUGS (2)
  1. FLUTICASONE 50 MCG PER ACTUATION [Suspect]
     Active Substance: FLUTICASONE
  2. AZELASTINE 137 MCG PER ACTUATION [Suspect]
     Active Substance: AZELASTINE

REACTIONS (2)
  - Nausea [None]
  - Headache [None]
